FAERS Safety Report 4595134-5 (Version None)
Quarter: 2005Q1

REPORT INFORMATION
  Report Type: 
  Country: None (occurrence: None)
  Receive Date: 20050224
  Receipt Date: 20040315
  Transmission Date: 20050727
  Serious: Yes (Other)
  Sender: FDA-Public Use
  Company Number: GXKR2004US00738

PATIENT
  Age: 75 Year
  Sex: Male

DRUGS (2)
  1. METRONIDAZOLE [Suspect]
     Indication: CLOSTRIDIUM COLITIS
     Dosage: 500 MG, TID, ORAL
     Route: 048
  2. VANCOMYCIN [Concomitant]

REACTIONS (7)
  - CLOSTRIDIUM COLITIS [None]
  - CONFUSIONAL STATE [None]
  - DEPRESSED LEVEL OF CONSCIOUSNESS [None]
  - DISEASE RECURRENCE [None]
  - DISORIENTATION [None]
  - HALLUCINATION [None]
  - MENTAL IMPAIRMENT [None]
